FAERS Safety Report 8981712 (Version 1)
Quarter: 2012Q4

REPORT INFORMATION
  Report Type: 
  Country: US (occurrence: US)
  Receive Date: 20121223
  Receipt Date: 20121223
  Transmission Date: 20130627
  Serious: No
  Sender: FDA-Public Use
  Company Number: US-BAYER-2012-129422

PATIENT
  Age: 44 Year
  Sex: Male

DRUGS (6)
  1. ALEVE CAPLET/TABLET,MIDOL EXTENDED RELIEF CAPLET [Suspect]
  2. NEURONTIN [Concomitant]
     Dosage: UNK
  3. LYRICA [Concomitant]
     Dosage: 1,UNK, BID
  4. NORCO [Concomitant]
  5. SOMA [Concomitant]
     Dosage: UNK
  6. AMITRIPTYLINE [Concomitant]
     Dosage: UNK

REACTIONS (1)
  - Drug hypersensitivity [None]
